FAERS Safety Report 6018024-X (Version None)
Quarter: 2008Q4

REPORT INFORMATION
  Report Type: 
  Country: None (occurrence: None)
  Receive Date: 20081223
  Receipt Date: 20081219
  Transmission Date: 20090506
  Serious: Yes (Other)
  Sender: FDA-Public Use
  Company Number: B0551325A

PATIENT
  Sex: Male

DRUGS (3)
  1. RETROVIR [Suspect]
     Route: 048
  2. EPIVIR [Suspect]
     Route: 048
  3. ZIAGEN [Suspect]
     Route: 048

REACTIONS (3)
  - IMMUNE RECONSTITUTION SYNDROME [None]
  - LYMPHADENOPATHY [None]
  - PYREXIA [None]
